FAERS Safety Report 22361296 (Version 1)
Quarter: 2023Q2

REPORT INFORMATION
  Report Type: Spontaneous
  Country: DE (occurrence: DE)
  Receive Date: 20230524
  Receipt Date: 20230524
  Transmission Date: 20230722
  Serious: Yes (Other)
  Sender: FDA-Public Use
  Company Number: DE-BAXTER-2023BAX019592

PATIENT
  Age: 47 Year
  Sex: Male

DRUGS (24)
  1. DIANEAL [Suspect]
     Active Substance: CALCIUM CHLORIDE\DEXTROSE\MAGNESIUM CHLORIDE\SODIUM CHLORIDE\SODIUM LACTATE
     Dosage: 2 BAGS
     Route: 033
     Dates: start: 201604
  2. DIANEAL [Suspect]
     Active Substance: CALCIUM CHLORIDE\DEXTROSE\MAGNESIUM CHLORIDE\SODIUM CHLORIDE\SODIUM LACTATE
     Dosage: 2 BAGS
     Route: 033
     Dates: start: 201604
  3. EXTRANEAL [Suspect]
     Active Substance: CALCIUM CHLORIDE\ICODEXTRIN\MAGNESIUM CHLORIDE\SODIUM CHLORIDE\SODIUM LACTATE
     Dosage: 1 BAG
     Route: 033
     Dates: start: 201604
  4. EXTRANEAL [Suspect]
     Active Substance: CALCIUM CHLORIDE\ICODEXTRIN\MAGNESIUM CHLORIDE\SODIUM CHLORIDE\SODIUM LACTATE
     Dosage: AT NIGHT
     Route: 033
     Dates: start: 202001
  5. NUTRINEAL PD4 [Suspect]
     Active Substance: AMINO ACIDS\CALCIUM CHLORIDE\MAGNESIUM CHLORIDE\SODIUM CHLORIDE\SODIUM LACTATE
     Dosage: 1 X DAILY
     Route: 033
  6. CARVEDILOL [Concomitant]
     Active Substance: CARVEDILOL
     Dosage: AL 25 MG 1 TABLET
     Route: 065
  7. CANDESARTAN CILEXETIL [Concomitant]
     Active Substance: CANDESARTAN CILEXETIL
     Dosage: 4 MG, 2 TABLETS
     Route: 065
  8. ATORVASTATIN [Concomitant]
     Active Substance: ATORVASTATIN
     Dosage: 10 MG, 1
     Route: 065
  9. RENAVIT [Concomitant]
     Dosage: 1 TABLET
     Route: 065
  10. ROCALTROL [Concomitant]
     Active Substance: CALCITRIOL
     Dosage: 0.5 ?G SOFT CAPSULES PAUSED
     Route: 065
  11. CHOLECALCIFEROL [Concomitant]
     Active Substance: CHOLECALCIFEROL
     Dosage: 20,000 I.E SOFT CAPSULES PAUSED
     Route: 065
  12. Novalgin [Concomitant]
     Dosage: UPTO 3X 40 DROPS WHEN NECESSARY
     Route: 065
  13. PREDNISOLONE [Concomitant]
     Active Substance: PREDNISOLONE
     Dosage: 20 MG GALEN TABLET
     Route: 065
  14. ARANESP [Concomitant]
     Active Substance: DARBEPOETIN ALFA
     Dosage: 80 ?G INJECTION-SOLUTION IN A PRE-FILLED SYRINGE AUTOMATIC NEEDLES 1 WEEKLY
     Route: 065
  15. PREGABALIN [Concomitant]
     Active Substance: PREGABALIN
     Dosage: BASICS 25 MG HARD CAPSULES 1 WHEN NECESSARY
     Route: 065
  16. ALUMINUM CHLOROHYDRATE [Concomitant]
     Active Substance: ALUMINUM CHLOROHYDRATE
     Dosage: 2-2-2-0,WITH MEALS
     Route: 065
  17. KA VIT [Concomitant]
     Dosage: DROPS 2 DROPS DAILY (4 MG)
     Route: 065
  18. LISINOPRIL [Concomitant]
     Active Substance: LISINOPRIL
     Indication: Gastrointestinal disorder
     Route: 065
  19. RENAGEL [Concomitant]
     Active Substance: SEVELAMER HYDROCHLORIDE
     Indication: Gastrointestinal disorder
     Route: 065
  20. FOSRENOL [Concomitant]
     Active Substance: LANTHANUM CARBONATE
     Indication: Gastrointestinal disorder
     Route: 065
  21. Moxonidine Akrihin [Concomitant]
     Indication: Dry mouth
     Route: 065
  22. Moxonidine Akrihin [Concomitant]
     Indication: Cough
  23. CINACALCET HYDROCHLORIDE [Concomitant]
     Active Substance: CINACALCET HYDROCHLORIDE
     Indication: Restlessness
     Route: 065
  24. CINACALCET HYDROCHLORIDE [Concomitant]
     Active Substance: CINACALCET HYDROCHLORIDE
     Indication: Nausea

REACTIONS (16)
  - Acute coronary syndrome [Unknown]
  - Arteriosclerosis coronary artery [Unknown]
  - Arteriovenous fistula aneurysm [Unknown]
  - Hypertensive heart disease [Unknown]
  - Calcinosis [Unknown]
  - Vitamin B12 deficiency [Unknown]
  - Umbilical hernia [Unknown]
  - Shunt blood flow excessive [Unknown]
  - Coronavirus infection [Unknown]
  - Cough [Unknown]
  - Chills [Recovered/Resolved]
  - Gastritis [Unknown]
  - Disease recurrence [Unknown]
  - Hypertension [Unknown]
  - Diarrhoea [Unknown]
  - Procedural pain [Recovered/Resolved]

NARRATIVE: CASE EVENT DATE: 20230305
